FAERS Safety Report 8267048-0 (Version None)
Quarter: 2012Q2

REPORT INFORMATION
  Report Type: 
  Country: None (occurrence: None)
  Receive Date: 20120409
  Receipt Date: 20120402
  Transmission Date: 20120825
  Serious: No
  Sender: FDA-Public Use
  Company Number: US-PFIZER INC-2012074615

PATIENT
  Sex: Male
  Weight: 83.9 kg

DRUGS (4)
  1. LEVOXYL [Suspect]
     Indication: HYPOTHYROIDISM
     Dosage: 150 UG, 1X/DAY
     Dates: start: 20110101
  2. SYNTHROID [Suspect]
     Indication: HYPOTHYROIDISM
     Dosage: UNK
  3. LEVOXYL [Suspect]
     Dosage: 100 UG, 1X/DAY
     Dates: start: 20120321
  4. LISINOPRIL [Suspect]
     Indication: HYPERTENSION
     Dosage: UNK

REACTIONS (2)
  - HYPERSENSITIVITY [None]
  - URTICARIA [None]
